FAERS Safety Report 16500645 (Version 1)
Quarter: 2019Q3

REPORT INFORMATION
  Report Type: Spontaneous
  Country: JP (occurrence: JP)
  Receive Date: 20190701
  Receipt Date: 20190701
  Transmission Date: 20191004
  Serious: Yes (Other)
  Sender: FDA-Public Use
  Company Number: JP-PFIZER INC-2019268173

PATIENT
  Age: 38 Year
  Sex: Male

DRUGS (2)
  1. COUGHCODE-N [Suspect]
     Active Substance: ACETAMINOPHEN\BROMISOVAL\DIHYDROCODEINE PHOSPHATE\DIPHENHYDRAMINE SALICYLATE\DYPHYLLINE\METHYLEPHEDRINE HYDROCHLORIDE, (+/-)-
     Dosage: UNK
     Dates: start: 201802, end: 201802
  2. ZITHROMAC 250MG [Suspect]
     Active Substance: AZITHROMYCIN DIHYDRATE
     Dosage: UNK
     Dates: start: 201802, end: 201802

REACTIONS (1)
  - Drug eruption [Unknown]
